FAERS Safety Report 7003642-2 (Version None)
Quarter: 2010Q3

REPORT INFORMATION
  Report Type: 
  Country: None (occurrence: None)
  Receive Date: 20100920
  Receipt Date: 20090929
  Transmission Date: 20110219
  Serious: No
  Sender: FDA-Public Use
  Company Number: US-WYE-H10457709

PATIENT
  Sex: Male

DRUGS (3)
  1. PROTONIX [Suspect]
     Dosage: UNKNOWN
  2. SENOKOT [Interacting]
  3. PERCOGESIC [Interacting]

REACTIONS (3)
  - DRUG INTERACTION [None]
  - MALAISE [None]
  - VOMITING [None]
